FAERS Safety Report 17301467 (Version 1)
Quarter: 2020Q1

REPORT INFORMATION
  Report Type: Report from Study
  Country: DE (occurrence: DE)
  Receive Date: 20200122
  Receipt Date: 20200122
  Transmission Date: 20200409
  Serious: Yes (Hospitalization)
  Sender: FDA-Public Use
  Company Number: DE-ROCHE-2040417

PATIENT
  Age: 81 Year
  Sex: Female
  Weight: 82 kg

DRUGS (11)
  1. OBINUTUZUMAB. [Suspect]
     Active Substance: OBINUTUZUMAB
     Indication: CHRONIC LYMPHOCYTIC LEUKAEMIA
     Dosage: DATE OF MOST RECENT DOSE PRIOR TO SAE: 09/JUN/2016 AND MOST RECENT DOSE: 1000 MG?DOSE, FORM AND FREQ
     Route: 042
     Dates: start: 20160120
  2. LISINOPRIL. [Concomitant]
     Active Substance: LISINOPRIL
     Route: 048
     Dates: start: 20171101
  3. TAMOXIFEN [Concomitant]
     Active Substance: TAMOXIFEN
     Route: 048
     Dates: start: 2012, end: 20180601
  4. MACROGOL [Concomitant]
     Active Substance: POLYETHYLENE GLYCOLS
     Indication: PROPHYLAXIS
     Route: 048
     Dates: start: 20171101, end: 20171214
  5. NOVAMINSULFON [Concomitant]
     Active Substance: METAMIZOLE
     Indication: HERPES ZOSTER
     Route: 048
     Dates: start: 201811
  6. VENETOCLAX. [Suspect]
     Active Substance: VENETOCLAX
     Indication: CHRONIC LYMPHOCYTIC LEUKAEMIA
     Dosage: DATE OF MOST RECENT DOSE PRIOR TO SAE: 21/DEC/2016; DOSE OF LAST GDC-0199 ADMINISTERED: 200 MG.?DOSE
     Route: 048
     Dates: start: 20160211
  7. ISOSORBIDMONONITRAT [Concomitant]
     Active Substance: ISOSORBIDE MONONITRATE
     Indication: HYPERTENSION
     Route: 048
     Dates: start: 2012
  8. LISINOPRIL. [Concomitant]
     Active Substance: LISINOPRIL
     Indication: HYPERTENSION
     Route: 048
     Dates: start: 2012, end: 20171031
  9. ALLOPURINOL. [Concomitant]
     Active Substance: ALLOPURINOL
     Indication: PROPHYLAXIS
     Route: 065
     Dates: start: 20161125
  10. TRAMAL [Concomitant]
     Active Substance: TRAMADOL
     Indication: HERPES ZOSTER
     Route: 048
     Dates: start: 201807
  11. ASPIRIN. [Concomitant]
     Active Substance: ASPIRIN
     Indication: PROPHYLAXIS
     Route: 048
     Dates: start: 2012

REACTIONS (1)
  - Ophthalmic herpes zoster [Recovered/Resolved with Sequelae]

NARRATIVE: CASE EVENT DATE: 20171101
